FAERS Safety Report 24920987 (Version 6)
Quarter: 2025Q3

REPORT INFORMATION
  Report Type: Report from Study
  Country: US (occurrence: US)
  Receive Date: 20250204
  Receipt Date: 20250703
  Transmission Date: 20251021
  Serious: Yes (Hospitalization, Other)
  Sender: UCB
  Company Number: US-UCBSA-2024060504

PATIENT
  Age: 10 Year
  Sex: Male

DRUGS (7)
  1. FINTEPLA [Suspect]
     Active Substance: FENFLURAMINE
     Indication: Lennox-Gastaut syndrome
     Dosage: 5.4 MILLILITER, 2X/DAY (BID)
     Dates: start: 20240925
  2. FINTEPLA [Suspect]
     Active Substance: FENFLURAMINE
     Dosage: 5.4 MILLILITER, 2X/DAY (BID)
  3. FINTEPLA [Suspect]
     Active Substance: FENFLURAMINE
     Dosage: 5.4 MILLILITER, 2X/DAY (BID)
  4. FINTEPLA [Suspect]
     Active Substance: FENFLURAMINE
     Dosage: 5.4 MILLILITER, 2X/DAY (BID)
  5. FINTEPLA [Suspect]
     Active Substance: FENFLURAMINE
  6. BRIVIACT [Suspect]
     Active Substance: BRIVARACETAM
     Indication: Product used for unknown indication
  7. EPIDIOLEX [Concomitant]
     Active Substance: CANNABIDIOL
     Indication: Product used for unknown indication

REACTIONS (8)
  - Seizure [Not Recovered/Not Resolved]
  - Dehydration [Recovering/Resolving]
  - Blood bicarbonate decreased [Recovering/Resolving]
  - Weight increased [Not Recovered/Not Resolved]
  - Therapeutic product effect incomplete [Unknown]
  - Insurance issue [Unknown]
  - Therapy interrupted [Unknown]
  - Drug ineffective [Unknown]

NARRATIVE: CASE EVENT DATE: 20241112
